FAERS Safety Report 21094023 (Version 3)
Quarter: 2022Q3

REPORT INFORMATION
  Report Type: Spontaneous
  Country: CH (occurrence: CH)
  Receive Date: 20220718
  Receipt Date: 20220812
  Transmission Date: 20221026
  Serious: Yes (Death)
  Sender: FDA-Public Use
  Company Number: CH-BAYER-2022A098300

PATIENT

DRUGS (1)
  1. VITRAKVI [Suspect]
     Active Substance: LAROTRECTINIB
     Indication: Glioblastoma
     Dosage: 100 MG, BID 2 ND LINE
     Dates: start: 202204, end: 202205

REACTIONS (1)
  - Glioblastoma [Fatal]
